FAERS Safety Report 5751564-7 (Version None)
Quarter: 2008Q2

REPORT INFORMATION
  Report Type: 
  Country: None (occurrence: None)
  Receive Date: 20080528
  Receipt Date: 20080519
  Transmission Date: 20081010
  Serious: Yes (Other)
  Sender: FDA-Public Use
  Company Number: PHHY2008BR07947

PATIENT
  Sex: Female
  Weight: 50 kg

DRUGS (7)
  1. HYGROTON [Suspect]
     Indication: HYPERTENSION
     Dosage: 25 MG, TID
  2. APRESOLINE [Suspect]
     Indication: HYPERTENSION
     Dosage: 25 MG, TID
  3. ACETYLSALICYLIC ACID SRT [Suspect]
     Indication: HEADACHE
     Dosage: 81 MG, QD
     Route: 048
  4. HYDERGINE [Suspect]
     Indication: INFARCTION
     Dosage: 1 TABLET AT NIGHT
  5. ANGIPRESS [Concomitant]
     Indication: HYPERTENSION
     Dosage: 100 MG, QD
     Route: 048
     Dates: start: 20000101
  6. ANGIPRESS [Concomitant]
     Dosage: 100 MG, QD
     Route: 048
     Dates: start: 20071001
  7. ISKEMIL [Concomitant]
     Dates: start: 20080509

REACTIONS (13)
  - BACK PAIN [None]
  - CEREBRAL INFARCTION [None]
  - CONFUSIONAL STATE [None]
  - DIZZINESS [None]
  - DYSENTERY [None]
  - HEADACHE [None]
  - HYPOTENSION [None]
  - MEMORY IMPAIRMENT [None]
  - MITRAL VALVE INCOMPETENCE [None]
  - NERVOUSNESS [None]
  - PERIPHERAL COLDNESS [None]
  - PLATELET COUNT DECREASED [None]
  - UNRESPONSIVE TO STIMULI [None]
